FAERS Safety Report 4700145-2 (Version None)
Quarter: 2005Q2

REPORT INFORMATION
  Report Type: 
  Country: None (occurrence: None)
  Receive Date: 20050627
  Receipt Date: 20050616
  Transmission Date: 20051028
  Serious: Yes (Death, Hospitalization)
  Sender: FDA-Public Use
  Company Number: US-JNJFOC-20050604878

PATIENT
  Age: 84 Year
  Sex: Male
  Weight: 61.8 kg

DRUGS (4)
  1. INFLIXIMAB [Suspect]
     Route: 042
  2. INFLIXIMAB [Suspect]
     Indication: NON-SMALL CELL LUNG CANCER
     Route: 042
  3. DOCETAXEL [Suspect]
     Indication: NON-SMALL CELL LUNG CANCER
  4. COUMADIN [Concomitant]

REACTIONS (3)
  - HAEMOPTYSIS [None]
  - PNEUMONIA [None]
  - PULMONARY EMBOLISM [None]
